FAERS Safety Report 5287399-1 (Version None)
Quarter: 2007Q1

REPORT INFORMATION
  Report Type: 
  Country: None (occurrence: None)
  Receive Date: 20070116
  Receipt Date: 20061101
  Transmission Date: 20070707
  Serious: No
  Sender: FDA-Public Use
  Company Number: 2006SP003893

PATIENT
  Age: 56 Year
  Sex: Female
  Weight: 43.0917 kg

DRUGS (3)
  1. LUNESTA [Suspect]
     Indication: INSOMNIA
     Dosage: SEE IMAGE
     Route: 048
     Dates: start: 20061001, end: 20061001
  2. VICODIN [Concomitant]
  3. IBUPROFEN [Concomitant]

REACTIONS (1)
  - INSOMNIA [None]
